FAERS Safety Report 4642369-9 (Version None)
Quarter: 2005Q2

REPORT INFORMATION
  Report Type: 
  Country: None (occurrence: None)
  Receive Date: 20050422
  Receipt Date: 20050216
  Transmission Date: 20051028
  Serious: Yes (Other)
  Sender: FDA-Public Use
  Company Number: US-GLAXOSMITHKLINE-A0545927A

PATIENT
  Age: 41 Year
  Sex: Female
  Weight: 95.5 kg

DRUGS (8)
  1. WELLBUTRIN [Suspect]
     Indication: DEPRESSION
     Dosage: 100MG PER DAY
     Route: 048
  2. WELLBUTRIN [Suspect]
     Dosage: 150MG PER DAY
  3. DURAGESIC-100 [Concomitant]
  4. EFFEXOR [Concomitant]
  5. VALIUM [Concomitant]
  6. VICODIN [Concomitant]
  7. NEURONTIN [Concomitant]
  8. AVANDIA [Concomitant]

REACTIONS (10)
  - ADVERSE DRUG REACTION [None]
  - CONSTIPATION [None]
  - DIPLOPIA [None]
  - DRY MOUTH [None]
  - HALLUCINATION, AUDITORY [None]
  - HALLUCINATION, VISUAL [None]
  - PRURITUS [None]
  - SOMNOLENCE [None]
  - TREATMENT NONCOMPLIANCE [None]
  - VISION BLURRED [None]
